FAERS Safety Report 6303949-8 (Version None)
Quarter: 2009Q3

REPORT INFORMATION
  Report Type: 
  Country: None (occurrence: None)
  Receive Date: 20090810
  Receipt Date: 20090810
  Transmission Date: 20100115
  Serious: Yes (Life-Threatening, Hospitalization)
  Sender: FDA-Public Use
  Company Number: None

PATIENT
  Age: 16 Year
  Sex: Female
  Weight: 68.0396 kg

DRUGS (3)
  1. ZOLOFT [Suspect]
     Indication: ANXIETY
     Dosage: 2 1 PID PO
     Route: 048
     Dates: start: 20070720, end: 20071101
  2. NEURONTIN [Suspect]
     Indication: BIPOLAR DISORDER
     Dosage: 3 1 -OR 27- PID PO
     Route: 048
     Dates: start: 20070920, end: 20080330
  3. SEROQUEL [Concomitant]

REACTIONS (9)
  - AGGRESSION [None]
  - ANXIETY [None]
  - BIPOLAR DISORDER [None]
  - DEPRESSION [None]
  - FEELING ABNORMAL [None]
  - RASH [None]
  - SUICIDE ATTEMPT [None]
  - VICTIM OF SEXUAL ABUSE [None]
  - WEIGHT INCREASED [None]
